FAERS Safety Report 24728012 (Version 2)
Quarter: 2025Q1

REPORT INFORMATION
  Report Type: Spontaneous
  Country: US (occurrence: US)
  Receive Date: 20241212
  Receipt Date: 20250102
  Transmission Date: 20250408
  Serious: Yes (Other)
  Sender: TEVA
  Company Number: US-TEVA-VS-3274515

PATIENT
  Age: 84 Year
  Sex: Male

DRUGS (2)
  1. GABAPENTIN [Suspect]
     Active Substance: GABAPENTIN
     Indication: Neuropathy peripheral
     Route: 065
  2. THIOCTIC ACID [Suspect]
     Active Substance: THIOCTIC ACID
     Indication: Neuropathy peripheral
     Route: 065

REACTIONS (2)
  - Glomerulonephritis membranous [Recovering/Resolving]
  - Drug ineffective [Unknown]
